FAERS Safety Report 14874572 (Version 3)
Quarter: 2019Q1

REPORT INFORMATION
  Report Type: Spontaneous
  Country: US (occurrence: US)
  Receive Date: 20180510
  Receipt Date: 20190117
  Transmission Date: 20190417
  Serious: Yes (Other)
  Sender: FDA-Public Use
  Company Number: US-JNJFOC-20180510795

PATIENT
  Sex: Female
  Weight: 69.85 kg

DRUGS (6)
  1. OXYCODONE [Concomitant]
     Active Substance: OXYCODONE
     Indication: BREAKTHROUGH PAIN
     Dosage: 20 MG EVERY 6 HOURS AS NEEDED
     Route: 048
     Dates: start: 2016
  2. FENTANYL SANDOZ [Suspect]
     Active Substance: FENTANYL
     Indication: ULCER HAEMORRHAGE
     Route: 062
     Dates: start: 201111
  3. FENTANYL. [Suspect]
     Active Substance: FENTANYL
     Indication: ULCER HAEMORRHAGE
     Route: 062
  4. OXYCODONE [Concomitant]
     Active Substance: OXYCODONE
     Indication: BREAKTHROUGH PAIN
     Route: 048
  5. FENTANYL. [Suspect]
     Active Substance: FENTANYL
     Indication: ULCER HAEMORRHAGE
     Route: 062
     Dates: start: 201111
  6. FENTANYL SANDOZ [Suspect]
     Active Substance: FENTANYL
     Indication: ULCER HAEMORRHAGE
     Route: 062

REACTIONS (6)
  - Breakthrough pain [Recovered/Resolved]
  - Bedridden [Not Recovered/Not Resolved]
  - Withdrawal syndrome [Recovered/Resolved]
  - Product complaint [Unknown]
  - Sepsis [Recovered/Resolved]
  - Weight decreased [Recovered/Resolved]

NARRATIVE: CASE EVENT DATE: 2011
